FAERS Safety Report 4874073-6 (Version None)
Quarter: 2005Q4

REPORT INFORMATION
  Report Type: 
  Country: None (occurrence: None)
  Receive Date: 20051201
  Receipt Date: 20050808
  Transmission Date: 20060501
  Serious: No
  Sender: FDA-Public Use
  Company Number: 2005PV000933

PATIENT
  Age: 56 Year
  Sex: Female
  Weight: 83.9154 kg

DRUGS (6)
  1. BYETTA [Suspect]
     Indication: DIABETES MELLITUS NON-INSULIN-DEPENDENT
     Dosage: SEE IMAGE
     Route: 058
     Dates: start: 20050611
  2. BYETTA [Suspect]
     Indication: DIABETES MELLITUS NON-INSULIN-DEPENDENT
     Dosage: SEE IMAGE
     Route: 058
     Dates: start: 20050711
  3. GLUCOVANCE [Concomitant]
  4. LISINOPRIL [Concomitant]
  5. METFORMIN HYDROCHLORIDE [Concomitant]
  6. GLUCOVANCE [Concomitant]

REACTIONS (9)
  - BLOOD GLUCOSE DECREASED [None]
  - BLOOD GLUCOSE INCREASED [None]
  - COLD SWEAT [None]
  - DECREASED APPETITE [None]
  - DIZZINESS [None]
  - ORAL INTAKE REDUCED [None]
  - TREMOR [None]
  - WEIGHT DECREASED [None]
  - WEIGHT INCREASED [None]
